FAERS Safety Report 6383921-2 (Version None)
Quarter: 2009Q4

REPORT INFORMATION
  Report Type: 
  Country: None (occurrence: None)
  Receive Date: 20091001
  Receipt Date: 20090923
  Transmission Date: 20100525
  Serious: Yes (Other)
  Sender: FDA-Public Use
  Company Number: US-BAYER-200914694BCC

PATIENT
  Age: 73 Year
  Sex: Female
  Weight: 76 kg

DRUGS (17)
  1. ASPIRIN [Suspect]
     Indication: DRUG USE FOR UNKNOWN INDICATION
     Dosage: TOTAL DAILY DOSE: 81 MG  UNIT DOSE: 81 MG
     Route: 048
     Dates: start: 20081002, end: 20090922
  2. FISH OIL (CVS BRAND) [Concomitant]
     Dosage: TOTAL DAILY DOSE: 2400 MG  UNIT DOSE: 1200 MG
     Route: 065
  3. BENEFIBER [Concomitant]
     Dosage: 2 TABLESPOONS IN THE MORNING MIXED WITH WATER
     Route: 065
  4. MAGNESIUM [Concomitant]
     Dosage: TOTAL DAILY DOSE: 250 MG  UNIT DOSE: 250 MG
     Route: 065
  5. ALIGN PROBIOTIC [Concomitant]
     Dosage: TOTAL DAILY DOSE: 4 MG  UNIT DOSE: 4 MG
     Route: 065
  6. CENTRUM SILVER A TO Z [Concomitant]
     Dosage: TOTAL DAILY DOSE: 1 DF
     Route: 065
     Dates: end: 20090922
  7. CITRACAL PLUS VITAMIN D [Concomitant]
     Route: 048
  8. ZYRTEC [Concomitant]
     Route: 065
  9. BENADRYL [Concomitant]
     Dosage: TOTAL DAILY DOSE: 1 DF
     Route: 065
     Dates: start: 20090922, end: 20090922
  10. ALENDRONATE SODIUM [Concomitant]
     Dosage: TOTAL DAILY DOSE: 70 MG  UNIT DOSE: 70 MG
     Route: 065
  11. GENERIC SYNTHROID [Concomitant]
     Route: 065
  12. SYNTHROID [Concomitant]
     Route: 065
  13. AVAPRO [Concomitant]
     Dosage: TOTAL DAILY DOSE: 150 MG  UNIT DOSE: 150 MG
     Route: 065
  14. METFORMIN HYDROCHLORIDE [Concomitant]
     Dosage: TOTAL DAILY DOSE: 2000 MG  UNIT DOSE: 500 MG
     Route: 065
  15. HYDROCHLOROTHIAZIDE [Concomitant]
     Dosage: TOTAL DAILY DOSE: 25 MG  UNIT DOSE: 25 MG
     Route: 065
  16. PRAVASTATIN [Concomitant]
     Dosage: TOTAL DAILY DOSE: 40 MG  UNIT DOSE: 40 MG
     Route: 065
  17. GLYBURIDE [Concomitant]
     Dosage: TOTAL DAILY DOSE: 10 MG  UNIT DOSE: 2.5 MG
     Route: 065

REACTIONS (1)
  - EYE HAEMORRHAGE [None]
